FAERS Safety Report 13301043 (Version 1)
Quarter: 2017Q1

REPORT INFORMATION
  Report Type: Spontaneous
  Country: JP (occurrence: JP)
  Receive Date: 20170307
  Receipt Date: 20170307
  Transmission Date: 20170428
  Serious: Yes (Other)
  Sender: FDA-Public Use
  Company Number: JP-CIPLA LTD.-2017JP02520

PATIENT

DRUGS (10)
  1. CISPLATIN. [Suspect]
     Active Substance: CISPLATIN
     Indication: TUMOUR THROMBOSIS
     Dosage: UNK, FOR 3 CYCLES
     Route: 013
  2. FLUOROURACIL. [Suspect]
     Active Substance: FLUOROURACIL
     Indication: TUMOUR THROMBOSIS
  3. SORAFENIB [Suspect]
     Active Substance: SORAFENIB
     Indication: TUMOUR THROMBOSIS
  4. MITOMYCIN C [Suspect]
     Active Substance: MITOMYCIN
     Indication: TUMOUR THROMBOSIS
  5. EPIRUBICIN [Suspect]
     Active Substance: EPIRUBICIN
     Indication: TUMOUR THROMBOSIS
  6. CISPLATIN. [Suspect]
     Active Substance: CISPLATIN
     Indication: HEPATOCELLULAR CARCINOMA
     Dosage: UNK, INITIAL THERAPY AND ONCE FOR 6 WEEKS FOR 10 MONTHS
     Route: 013
  7. MITOMYCIN C [Suspect]
     Active Substance: MITOMYCIN
     Indication: HEPATOCELLULAR CARCINOMA
     Dosage: UNK, FOR 1 CYCLE
     Route: 013
  8. FLUOROURACIL. [Suspect]
     Active Substance: FLUOROURACIL
     Indication: HEPATOCELLULAR CARCINOMA
     Dosage: UNK, LOW DOSE, FOR 3 CYCLES
     Route: 013
  9. EPIRUBICIN [Suspect]
     Active Substance: EPIRUBICIN
     Indication: HEPATOCELLULAR CARCINOMA
     Dosage: UNK, FOR 1 CYCLE
     Route: 013
  10. SORAFENIB [Suspect]
     Active Substance: SORAFENIB
     Indication: HEPATOCELLULAR CARCINOMA
     Dosage: UNK
     Route: 048

REACTIONS (2)
  - Neoplasm progression [Unknown]
  - Drug ineffective [Unknown]
